FAERS Safety Report 8229176-5 (Version None)
Quarter: 2012Q1

REPORT INFORMATION
  Report Type: 
  Country: None (occurrence: None)
  Receive Date: 20120322
  Receipt Date: 20120320
  Transmission Date: 20120608
  Serious: Yes (Other)
  Sender: FDA-Public Use
  Company Number: NZ-PFIZER INC-2012072768

PATIENT
  Age: 33 Year
  Sex: Male

DRUGS (1)
  1. LIPITOR [Suspect]
     Indication: HYPERCHOLESTEROLAEMIA
     Dosage: 20 MG, UNK
     Dates: start: 20111020

REACTIONS (3)
  - ANGIOEDEMA [None]
  - ALANINE AMINOTRANSFERASE INCREASED [None]
  - DYSPHONIA [None]
